FAERS Safety Report 5843920-3 (Version None)
Quarter: 2008Q3

REPORT INFORMATION
  Report Type: 
  Country: None (occurrence: None)
  Receive Date: 20080808
  Receipt Date: 20080725
  Transmission Date: 20090109
  Serious: Yes (Hospitalization)
  Sender: FDA-Public Use
  Company Number: 2008BI017364

PATIENT
  Age: 44 Year
  Sex: Male
  Weight: 82 kg

DRUGS (4)
  1. TYSABRI [Suspect]
     Indication: MULTIPLE SCLEROSIS
     Dosage: 300 MG; QM; IV
     Route: 042
     Dates: start: 20080114
  2. TRAMADOL (CON.) [Concomitant]
  3. AVONEX (PREV.) [Concomitant]
  4. COPAXONE (PREV.) [Concomitant]

REACTIONS (3)
  - INGUINAL HERNIA [None]
  - POST PROCEDURAL SWELLING [None]
  - PROCEDURAL PAIN [None]
